FAERS Safety Report 8597006-8 (Version None)
Quarter: 2012Q3

REPORT INFORMATION
  Report Type: 
  Country: None (occurrence: None)
  Receive Date: 20120816
  Receipt Date: 20120807
  Transmission Date: 20120928
  Serious: Yes (Other)
  Sender: FDA-Public Use
  Company Number: BR-AMGEN-BRASP2012042124

PATIENT
  Age: 45 Year
  Sex: Female
  Weight: 43 kg

DRUGS (5)
  1. ENBREL [Suspect]
     Indication: RHEUMATOID ARTHRITIS
     Dosage: 50 MG, ONCE WEEKLY
     Dates: start: 20110901, end: 20120401
  2. METHOTREXATE [Concomitant]
  3. PREDNISONE TAB [Concomitant]
  4. LOSARTAN POTASSIUM [Concomitant]
  5. TORLOS HCT [Concomitant]

REACTIONS (2)
  - DRUG INEFFECTIVE [None]
  - RHEUMATOID ARTHRITIS [None]
